FAERS Safety Report 8929625 (Version 2)
Quarter: 2012Q4

REPORT INFORMATION
  Report Type: 
  Country: US (occurrence: US)
  Receive Date: 20121121
  Receipt Date: 20121121
  Transmission Date: 20130627
  Serious: Yes (Death, Other)
  Sender: FDA-Public Use
  Company Number: US-ASTELLAS-1089761

PATIENT
  Sex: Female

DRUGS (6)
  1. AVASTIN [Suspect]
     Indication: MALIGNANT RESPIRATORY TRACT NEOPLASM
     Route: 065
     Dates: start: 20050728
  2. TARCEVA [Suspect]
     Indication: MALIGNANT RESPIRATORY TRACT NEOPLASM
  3. TAXOL [Concomitant]
  4. CARBOPLATIN [Concomitant]
  5. GEMCITABINE [Concomitant]
  6. TRIAPINE [Concomitant]

REACTIONS (4)
  - Death [Fatal]
  - Rash [Unknown]
  - Diarrhoea [Unknown]
  - Disease progression [Unknown]
